FAERS Safety Report 5726450-9 (Version None)
Quarter: 2008Q2

REPORT INFORMATION
  Report Type: 
  Country: None (occurrence: None)
  Receive Date: 20080502
  Receipt Date: 20080422
  Transmission Date: 20081010
  Serious: Yes (Hospitalization)
  Sender: FDA-Public Use
  Company Number: B0517908A

PATIENT
  Age: 10 Month
  Sex: Male

DRUGS (3)
  1. RETROVIR [Suspect]
     Indication: ANTIVIRAL PROPHYLAXIS
     Route: 048
     Dates: start: 20060413, end: 20060513
  2. COMBIVIR [Suspect]
     Indication: HIV INFECTION
     Dates: end: 20060413
  3. VIRACEPT [Suspect]
     Indication: HIV INFECTION
     Dates: end: 20060413

REACTIONS (3)
  - BLOOD CREATINE PHOSPHOKINASE INCREASED [None]
  - DRUG EXPOSURE DURING PREGNANCY [None]
  - VITH NERVE PARALYSIS [None]
